FAERS Safety Report 9536914 (Version 2)
Quarter: 2013Q3

REPORT INFORMATION
  Report Type: Spontaneous
  Country: CN (occurrence: CN)
  Receive Date: 20130919
  Receipt Date: 20130919
  Transmission Date: 20140515
  Serious: Yes (Death, Hospitalization, Other)
  Sender: FDA-Public Use
  Company Number: CN-BAYER-2013-107930

PATIENT
  Age: 75 Year
  Sex: Female

DRUGS (2)
  1. ULTRAVIST [Suspect]
     Indication: COMPUTERISED TOMOGRAM
     Dosage: 75 ML, UNK
     Route: 042
     Dates: start: 20130709, end: 20130709
  2. GLUCOSE [Concomitant]

REACTIONS (15)
  - Hypersensitivity [Fatal]
  - Sneezing [Fatal]
  - Shock [Fatal]
  - Coma [Fatal]
  - Cyanosis [Fatal]
  - Dyspnoea [Fatal]
  - Blood pressure decreased [Fatal]
  - Heart rate decreased [Fatal]
  - Flushing [Fatal]
  - Cough [Fatal]
  - Unevaluable event [None]
  - Cardiac failure congestive [None]
  - Renal failure [None]
  - Pyrexia [None]
  - Gastrointestinal necrosis [None]
